FAERS Safety Report 6283046-0 (Version None)
Quarter: 2009Q3

REPORT INFORMATION
  Report Type: 
  Country: None (occurrence: None)
  Receive Date: 20090724
  Receipt Date: 20090710
  Transmission Date: 20100115
  Serious: Yes (Other)
  Sender: FDA-Public Use
  Company Number: US-PFIZER INC-2008028719

PATIENT
  Sex: Male
  Weight: 101.6 kg

DRUGS (8)
  1. SILDENAFIL CITRATE [Suspect]
     Indication: PULMONARY HYPERTENSION
     Dosage: 20 MG, 3X/DAY
     Route: 048
     Dates: start: 20080109, end: 20080225
  2. SILDENAFIL CITRATE [Suspect]
     Dosage: 40 MG, 3X/DAY
     Route: 048
     Dates: start: 20080225, end: 20080324
  3. SILDENAFIL CITRATE [Suspect]
     Dosage: 80 MG, 3X/DAY
     Route: 048
     Dates: start: 20080324, end: 20080401
  4. COUMADIN [Suspect]
     Indication: SICKLE CELL ANAEMIA
     Dosage: 6 MG, 1X/DAY
     Route: 048
     Dates: start: 20071003, end: 20080401
  5. COUMADIN [Suspect]
     Dosage: 6 MG, 1X/DAY
     Route: 048
     Dates: start: 20080402, end: 20080907
  6. COUMADIN [Suspect]
     Dosage: 5 MG, 1X/DAY
     Route: 048
     Dates: start: 20080908, end: 20080914
  7. COUMADIN [Suspect]
     Dosage: 5 MG ALTERNATING 6 MG,ONCE DAILY
     Route: 048
     Dates: start: 20080915
  8. LOVENOX [Concomitant]
     Dosage: 100 MG, 2X/DAY
     Route: 058
     Dates: start: 20080107

REACTIONS (1)
  - VITREOUS HAEMORRHAGE [None]
